FAERS Safety Report 6767894-6 (Version None)
Quarter: 2010Q2

REPORT INFORMATION
  Report Type: 
  Country: None (occurrence: None)
  Receive Date: 20100614
  Receipt Date: 20100614
  Transmission Date: 20101027
  Serious: No
  Sender: FDA-Public Use
  Company Number: None

PATIENT
  Age: 4 Year
  Sex: Female
  Weight: 17.9 kg

DRUGS (1)
  1. CHILDREN'S TYLENOL [Suspect]
     Indication: PYREXIA
     Dosage: TYLENOL 89 MG/KG PO
     Route: 048
     Dates: start: 20100604, end: 20100605

REACTIONS (1)
  - VOMITING [None]
